FAERS Safety Report 16016913 (Version 2)
Quarter: 2019Q2

REPORT INFORMATION
  Report Type: Spontaneous
  Country: US (occurrence: US)
  Receive Date: 20190228
  Receipt Date: 20190417
  Transmission Date: 20190711
  Serious: No
  Sender: FDA-Public Use
  Company Number: US-PFIZER INC-2019083909

PATIENT
  Age: 55 Year
  Sex: Female

DRUGS (2)
  1. LYRICA [Suspect]
     Active Substance: PREGABALIN
     Indication: TRIGEMINAL NEURALGIA
  2. LYRICA [Suspect]
     Active Substance: PREGABALIN
     Indication: FACIAL PAIN
     Dosage: 75 MG, 3X/DAY
     Route: 048
     Dates: start: 2018

REACTIONS (3)
  - Malaise [Unknown]
  - Vomiting [Unknown]
  - Pain [Unknown]
